FAERS Safety Report 4744423-X (Version None)
Quarter: 2005Q3

REPORT INFORMATION
  Report Type: 
  Country: None (occurrence: None)
  Receive Date: 20050812
  Receipt Date: 20050506
  Transmission Date: 20060218
  Serious: Yes (Hospitalization, Other)
  Sender: FDA-Public Use
  Company Number: US-MERCK-0505USA00970

PATIENT
  Age: 64 Year
  Sex: Female
  Weight: 61 kg

DRUGS (14)
  1. VIOXX [Suspect]
     Indication: ARTHRITIS
     Route: 048
     Dates: start: 20000101, end: 20020101
  2. VIOXX [Suspect]
     Route: 048
     Dates: end: 20040701
  3. VIOXX [Suspect]
     Indication: OSTEOARTHRITIS
     Route: 048
     Dates: start: 20000101, end: 20020101
  4. VIOXX [Suspect]
     Route: 048
     Dates: end: 20040701
  5. ASPIRIN [Concomitant]
     Route: 065
     Dates: start: 20000101
  6. LOTREL [Concomitant]
     Indication: HYPERTENSION
     Route: 065
     Dates: start: 20010301, end: 20040701
  7. ZOCOR [Concomitant]
     Indication: BLOOD CHOLESTEROL INCREASED
     Route: 048
     Dates: start: 20000301, end: 20020701
  8. PERCOCET [Concomitant]
     Route: 065
     Dates: start: 20020101
  9. ENALAPRIL MALEATE [Concomitant]
     Indication: DIABETES MELLITUS
     Route: 065
  10. HUMULIN [Concomitant]
     Indication: DIABETES MELLITUS
     Route: 065
  11. GLUCOPHAGE [Concomitant]
     Indication: DIABETES MELLITUS
     Route: 065
  12. SKELAXIN [Concomitant]
     Route: 065
  13. MAGNESIUM OXIDE [Concomitant]
     Route: 065
  14. SOMA [Concomitant]
     Route: 065

REACTIONS (10)
  - ANXIETY [None]
  - CARDIAC FAILURE CONGESTIVE [None]
  - CHEST PAIN [None]
  - CHRONIC OBSTRUCTIVE PULMONARY DISEASE [None]
  - CORONARY ARTERY DISEASE [None]
  - DEPRESSION [None]
  - DRUG HYPERSENSITIVITY [None]
  - GALLBLADDER DISORDER [None]
  - MYOCARDIAL INFARCTION [None]
  - PEPTIC ULCER [None]
